FAERS Safety Report 4406367-2 (Version None)
Quarter: 2004Q3

REPORT INFORMATION
  Report Type: 
  Country: None (occurrence: None)
  Receive Date: 20040723
  Receipt Date: 20030708
  Transmission Date: 20050211
  Serious: No
  Sender: FDA-Public Use
  Company Number: US-GLAXOSMITHKLINE-A0415774A

PATIENT
  Age: 72 Year
  Sex: Female

DRUGS (12)
  1. AVANDIA [Suspect]
     Route: 048
     Dates: start: 20030628, end: 20030707
  2. GLUCOPHAGE [Concomitant]
     Route: 048
     Dates: start: 20030708
  3. ACTOS [Concomitant]
     Dosage: 30MG PER DAY
     Route: 048
  4. LIPITOR [Concomitant]
     Route: 048
  5. TRICOR [Concomitant]
     Route: 048
  6. PREMARIN [Concomitant]
     Route: 048
  7. ATENOLOL [Concomitant]
     Route: 048
  8. PRILOSEC [Concomitant]
     Route: 048
  9. CELEBREX [Concomitant]
     Route: 048
  10. MAVIK [Concomitant]
     Route: 048
  11. SINGULAIR [Concomitant]
     Route: 048
  12. NASONEX [Concomitant]

REACTIONS (3)
  - BLOOD GLUCOSE INCREASED [None]
  - OEDEMA PERIPHERAL [None]
  - WEIGHT INCREASED [None]
